FAERS Safety Report 15232699 (Version 1)
Quarter: 2018Q3

REPORT INFORMATION
  Report Type: Spontaneous
  Country: US (occurrence: US)
  Receive Date: 20180709
  Receipt Date: 20180709
  Transmission Date: 20181010
  Serious: Yes (Other)
  Sender: FDA-Public Use
  Company Number: None

PATIENT
  Age: 62 Year
  Sex: Female
  Weight: 60.75 kg

DRUGS (12)
  1. HAIR?SKIN?NAILS [Concomitant]
  2. CALCIUM [Concomitant]
     Active Substance: CALCIUM
  3. DIPHENHYDRAMINE. [Concomitant]
     Active Substance: DIPHENHYDRAMINE
  4. D3 SUPPLEMENT WITH CALCIUM SUPPLEMENT [Concomitant]
  5. CYCLOBENZAPR [Concomitant]
     Active Substance: CYCLOBENZAPRINE
  6. TRAMADOL. [Concomitant]
     Active Substance: TRAMADOL
  7. IBUPROFEN. [Concomitant]
     Active Substance: IBUPROFEN
  8. MAGNESIUM + ZINC [Concomitant]
  9. SUPER B?COMPLEX [Concomitant]
  10. LUTEIN [Concomitant]
     Active Substance: LUTEIN
  11. CHLORTABS [Suspect]
     Active Substance: CHLORPHENIRAMINE MALEATE
     Indication: HYPERSENSITIVITY
     Dosage: ?          QUANTITY:1 TABLET(S);?
     Route: 048
     Dates: start: 20180703, end: 20180703
  12. IRON [Concomitant]
     Active Substance: IRON

REACTIONS (1)
  - Deafness bilateral [None]

NARRATIVE: CASE EVENT DATE: 20180703
